FAERS Safety Report 7441651-X (Version None)
Quarter: 2011Q2

REPORT INFORMATION
  Report Type: 
  Country: None (occurrence: None)
  Receive Date: 20110428
  Receipt Date: 20110419
  Transmission Date: 20111010
  Serious: Yes (Hospitalization)
  Sender: FDA-Public Use
  Company Number: JP-ASTRAZENECA-2011SE18950

PATIENT
  Age: 82 Year
  Sex: Male
  Weight: 49 kg

DRUGS (30)
  1. PL [Concomitant]
     Route: 048
     Dates: start: 20100615, end: 20100619
  2. PL [Concomitant]
     Route: 048
     Dates: start: 20100615, end: 20100619
  3. SYMBICORT [Suspect]
     Indication: CHRONIC OBSTRUCTIVE PULMONARY DISEASE
     Dosage: ST 160/4.5 MCG  TWO TIMES A DAY
     Route: 055
     Dates: start: 20100603, end: 20110330
  4. MUCODYNE [Concomitant]
     Route: 048
     Dates: start: 20100701
  5. LENDORMIN D [Concomitant]
     Indication: INSOMNIA
     Route: 048
     Dates: start: 20091027
  6. JUSO [Concomitant]
     Indication: GASTRITIS
     Route: 048
     Dates: start: 20090414
  7. NEO UMOR [Concomitant]
     Indication: GASTRITIS
     Dosage: 1G/DAY THREE TIMES A DAY
     Route: 048
     Dates: start: 20100817
  8. PL [Concomitant]
     Route: 048
     Dates: start: 20110327
  9. CRAVIT [Concomitant]
     Route: 048
     Dates: start: 20100721, end: 20100724
  10. EURAX H [Concomitant]
     Indication: ECZEMA
     Route: 062
  11. LAC-B [Concomitant]
     Indication: GASTRITIS
     Dosage: 2G/DAY THREE TIMES A DAY
     Route: 048
     Dates: start: 20090401
  12. COMPOUND EPITHANATE-G [Concomitant]
     Indication: GASTRITIS
     Dosage: 1G/DAY THREE TIMES A DAY
     Route: 048
     Dates: start: 20100817
  13. PL [Concomitant]
     Route: 048
     Dates: start: 20100721, end: 20100724
  14. PL [Concomitant]
     Route: 048
     Dates: start: 20100721, end: 20100724
  15. CRAVIT [Concomitant]
     Indication: NASOPHARYNGITIS
     Route: 048
     Dates: start: 20100531, end: 20100604
  16. CRAVIT [Concomitant]
     Indication: PYREXIA
     Route: 048
     Dates: start: 20100531, end: 20100604
  17. SULTANOL [Concomitant]
     Indication: CHRONIC OBSTRUCTIVE PULMONARY DISEASE
     Dosage: AS REQUIRED
     Route: 055
     Dates: start: 20100520
  18. PL [Concomitant]
     Indication: PYREXIA
     Route: 048
     Dates: start: 20100524, end: 20100604
  19. PL [Concomitant]
     Route: 048
     Dates: start: 20110327
  20. CRAVIT [Concomitant]
     Route: 048
     Dates: start: 20110327
  21. SPIRIVA [Concomitant]
     Indication: CHRONIC OBSTRUCTIVE PULMONARY DISEASE
     Route: 055
     Dates: start: 20050111
  22. DIASTASE [Concomitant]
     Indication: GASTRITIS
     Dosage: 0.5G/DAY THREE TIMES A DAY
     Route: 048
     Dates: start: 20090401
  23. GESCHWUR [Concomitant]
     Indication: GASTRITIS
     Route: 048
     Dates: end: 20100816
  24. CRAVIT [Concomitant]
     Route: 048
     Dates: start: 20100615, end: 20100619
  25. CRAVIT [Concomitant]
     Route: 048
     Dates: start: 20110327
  26. CRAVIT [Concomitant]
     Route: 048
     Dates: start: 20100615, end: 20100619
  27. CRAVIT [Concomitant]
     Route: 048
     Dates: start: 20100721, end: 20100724
  28. MUCODYNE [Concomitant]
     Indication: CHRONIC OBSTRUCTIVE PULMONARY DISEASE
     Route: 048
     Dates: end: 20100630
  29. PL [Concomitant]
     Indication: NASOPHARYNGITIS
     Route: 048
     Dates: start: 20100524, end: 20100604
  30. CALONAL [Concomitant]
     Indication: NASOPHARYNGITIS
     Route: 048
     Dates: start: 20100531, end: 20100604

REACTIONS (1)
  - PNEUMONIA [None]
